FAERS Safety Report 7199599-4 (Version None)
Quarter: 2010Q4

REPORT INFORMATION
  Report Type: 
  Country: None (occurrence: None)
  Receive Date: 20101228
  Receipt Date: 20101217
  Transmission Date: 20110411
  Serious: Yes (Hospitalization)
  Sender: FDA-Public Use
  Company Number: US-JNJFOC-20101108423

PATIENT
  Sex: Female
  Weight: 42.1 kg

DRUGS (3)
  1. REMICADE [Suspect]
     Indication: INFLAMMATORY BOWEL DISEASE
     Route: 042
  2. CIMZIA [Concomitant]
  3. BUDESONIDE [Concomitant]

REACTIONS (1)
  - ADNEXA UTERI CYST [None]
